FAERS Safety Report 13302673 (Version 2)
Quarter: 2017Q1

REPORT INFORMATION
  Report Type: Report from Study
  Country: US (occurrence: US)
  Receive Date: 20170307
  Receipt Date: 20170329
  Transmission Date: 20170428
  Serious: Yes (Hospitalization)
  Sender: FDA-Public Use
  Company Number: PHHO2017US004465

PATIENT
  Age: 5 Year
  Sex: Female
  Weight: 24.2 kg

DRUGS (11)
  1. KINERET [Suspect]
     Active Substance: ANAKINRA
     Dosage: 0.34 ML, UNK
     Route: 065
     Dates: start: 201601, end: 201603
  2. KINERET [Suspect]
     Active Substance: ANAKINRA
     Dosage: 0.34 ML, UNK
     Route: 065
     Dates: start: 201603, end: 20160415
  3. KINERET [Suspect]
     Active Substance: ANAKINRA
     Dosage: 100 MG, UNK
     Route: 065
     Dates: start: 20160812, end: 20170226
  4. KINERET [Suspect]
     Active Substance: ANAKINRA
     Indication: JUVENILE IDIOPATHIC ARTHRITIS
     Dosage: 0.34 ML, UNK
     Route: 065
     Dates: start: 20150918, end: 201511
  5. KINERET [Suspect]
     Active Substance: ANAKINRA
     Indication: IMMUNOMODULATORY THERAPY
     Dosage: 0.34 ML, UNK
     Route: 065
     Dates: start: 201511, end: 201512
  6. KINERET [Suspect]
     Active Substance: ANAKINRA
     Dosage: 100 MG, UNK
     Route: 065
     Dates: start: 201605, end: 20160624
  7. KINERET [Suspect]
     Active Substance: ANAKINRA
     Dosage: 0.34 ML, UNK
     Route: 065
     Dates: start: 201512, end: 201601
  8. KINERET [Suspect]
     Active Substance: ANAKINRA
     Dosage: 0.34 ML, UNK
     Route: 065
     Dates: start: 20160415, end: 201605
  9. ACZ885 [Suspect]
     Active Substance: CANAKINUMAB
     Indication: JUVENILE IDIOPATHIC ARTHRITIS
     Dosage: 100 MG, UNK
     Route: 065
     Dates: start: 20161207, end: 20161231
  10. KINERET [Suspect]
     Active Substance: ANAKINRA
     Dosage: 100 MG, UNK
     Route: 065
     Dates: start: 20170226
  11. KINERET [Suspect]
     Active Substance: ANAKINRA
     Dosage: UNK
     Route: 065
     Dates: start: 20160804, end: 20160812

REACTIONS (3)
  - Histiocytosis haematophagic [Recovering/Resolving]
  - Pyrexia [Recovered/Resolved]
  - Lymphadenopathy [Unknown]

NARRATIVE: CASE EVENT DATE: 20170223
